FAERS Safety Report 7426691-9 (Version None)
Quarter: 2011Q2

REPORT INFORMATION
  Report Type: 
  Country: None (occurrence: None)
  Receive Date: 20110420
  Receipt Date: 20110324
  Transmission Date: 20111010
  Serious: No
  Sender: FDA-Public Use
  Company Number: US-B.I. PHARMACEUTICALS,INC./RIDGEFIELD-2011-BP-06580BP

PATIENT
  Sex: Female

DRUGS (13)
  1. ALBUTEROL [Concomitant]
     Indication: CHRONIC OBSTRUCTIVE PULMONARY DISEASE
  2. CLONAZEPAM [Concomitant]
     Indication: ANXIETY
  3. FLEXERIL [Concomitant]
     Indication: TEMPOROMANDIBULAR JOINT SYNDROME
  4. EVISTA [Concomitant]
     Indication: OSTEOPOROSIS
  5. ALPRAZOLAM [Concomitant]
     Indication: ANXIETY
     Dates: start: 20050101
  6. SPIRIVA [Suspect]
     Indication: CHRONIC OBSTRUCTIVE PULMONARY DISEASE
     Dosage: 18 MCG
     Route: 055
     Dates: start: 20060101
  7. DULERA TABLET [Concomitant]
     Indication: CHRONIC OBSTRUCTIVE PULMONARY DISEASE
  8. SYMBICORT [Concomitant]
     Indication: CHRONIC OBSTRUCTIVE PULMONARY DISEASE
  9. ACTONEL [Concomitant]
     Indication: OSTEOPOROSIS
  10. PROMETHAZINE [Concomitant]
     Indication: NAUSEA
  11. COMBIVENT [Concomitant]
     Indication: CHRONIC OBSTRUCTIVE PULMONARY DISEASE
     Dates: start: 20050101
  12. PREDNISONE TAB [Concomitant]
     Indication: CHRONIC OBSTRUCTIVE PULMONARY DISEASE
  13. DUONEB [Concomitant]
     Indication: CHRONIC OBSTRUCTIVE PULMONARY DISEASE

REACTIONS (4)
  - HERPES ZOSTER [None]
  - HYPERTENSION [None]
  - DRUG INEFFECTIVE [None]
  - POST HERPETIC NEURALGIA [None]
